FAERS Safety Report 7028084-5 (Version None)
Quarter: 2010Q3

REPORT INFORMATION
  Report Type: 
  Country: None (occurrence: None)
  Receive Date: 20100930
  Receipt Date: 20100923
  Transmission Date: 20110219
  Serious: Yes (Other)
  Sender: FDA-Public Use
  Company Number: 2010SP051082

PATIENT
  Age: 30 Year
  Sex: Female
  Weight: 60 kg

DRUGS (2)
  1. NUVARING [Suspect]
     Indication: CONTRACEPTION
     Dosage: VAG
     Route: 067
     Dates: start: 20100701, end: 20100922
  2. NUVARING [Suspect]
     Indication: LEIOMYOMA
     Dosage: VAG
     Route: 067
     Dates: start: 20100701, end: 20100922

REACTIONS (2)
  - ANAEMIA [None]
  - OFF LABEL USE [None]
